FAERS Safety Report 17431194 (Version 1)
Quarter: 2020Q1

REPORT INFORMATION
  Report Type: Spontaneous
  Country: US (occurrence: US)
  Receive Date: 20200218
  Receipt Date: 20200218
  Transmission Date: 20200409
  Serious: No
  Sender: FDA-Public Use
  Company Number: US-ACTELION-A-NJ2020-200789

PATIENT
  Age: 46 Year
  Sex: Female
  Weight: 100.23 kg

DRUGS (12)
  1. PROCARDIA [Concomitant]
     Active Substance: NIFEDIPINE
     Dosage: 30 MG, QD
  2. CRYSELLE [Concomitant]
     Active Substance: ETHINYL ESTRADIOL\NORGESTREL
     Dosage: 0.3-30 MG
  3. LASIX [Concomitant]
     Active Substance: FUROSEMIDE
     Dosage: 20 MG 3 DAYS A WEEK (MON, WED, FRI)
  4. OPSUMIT [Suspect]
     Active Substance: MACITENTAN
     Indication: PULMONARY ARTERIAL HYPERTENSION
     Dosage: 10 MG, QD
     Route: 048
     Dates: start: 20191229
  5. LOSARTAN. [Concomitant]
     Active Substance: LOSARTAN
     Dosage: 25 MG, QD
  6. PREDNISONE. [Concomitant]
     Active Substance: PREDNISONE
     Dosage: 5 MG, QD
  7. PLAQUENIL [Concomitant]
     Active Substance: HYDROXYCHLOROQUINE SULFATE
     Dosage: 200 MG, BID
  8. PEPCID [Concomitant]
     Active Substance: FAMOTIDINE
     Dosage: 40 MG, QD
  9. NEXIUM [Concomitant]
     Active Substance: ESOMEPRAZOLE MAGNESIUM
     Dosage: 40 MG, QD
  10. BENTYL [Concomitant]
     Active Substance: DICYCLOMINE HYDROCHLORIDE
     Dosage: 10 MG TID, PRN
  11. TRAZODONE [Concomitant]
     Active Substance: TRAZODONE HYDROCHLORIDE
     Dosage: 50 MG, QD
  12. ADCIRCA [Suspect]
     Active Substance: TADALAFIL
     Indication: PULMONARY ARTERIAL HYPERTENSION
     Dosage: UNK
     Route: 065
     Dates: start: 20200108

REACTIONS (4)
  - Nasal congestion [Not Recovered/Not Resolved]
  - Rhinorrhoea [Unknown]
  - Throat irritation [Unknown]
  - Headache [Not Recovered/Not Resolved]

NARRATIVE: CASE EVENT DATE: 20200108
